FAERS Safety Report 7225359-1 (Version None)
Quarter: 2011Q1

REPORT INFORMATION
  Report Type: 
  Country: None (occurrence: None)
  Receive Date: 20110103
  Receipt Date: 20101217
  Transmission Date: 20110831
  Serious: Yes (Other)
  Sender: FDA-Public Use
  Company Number: 023980

PATIENT
  Sex: Female
  Weight: 145.2 kg

DRUGS (2)
  1. CIMZIA [Suspect]
     Indication: RHEUMATOID ARTHRITIS
     Dosage: SUBCUTANEOUS
     Route: 058
     Dates: start: 20101103
  2. TRAMADOL [Concomitant]

REACTIONS (2)
  - ECZEMA [None]
  - PSORIASIS [None]
